FAERS Safety Report 6647876-5 (Version None)
Quarter: 2010Q1

REPORT INFORMATION
  Report Type: 
  Country: None (occurrence: None)
  Receive Date: 20100324
  Receipt Date: 20100312
  Transmission Date: 20100710
  Serious: Yes (Other)
  Sender: FDA-Public Use
  Company Number: CA-SOLVAY-00210001612

PATIENT
  Age: 18915 Day
  Sex: Male

DRUGS (5)
  1. PARIET [Concomitant]
     Indication: DRUG USE FOR UNKNOWN INDICATION
     Dosage: DAILY DOSE: 20 MILLIGRAM(S)
     Route: 048
     Dates: start: 20091201
  2. CLONAZEPAM [Concomitant]
     Indication: DEPRESSION
     Dosage: DAILY DOSE: .5 MILLIGRAM(S)
     Route: 048
  3. MIRTAZAPINE [Concomitant]
     Indication: DEPRESSION
     Dosage: DAILY DOSE: 30 MILLIGRAM(S)
     Route: 048
  4. RISPERIDONE [Concomitant]
     Indication: DEPRESSION
     Dosage: DAILY DOSE: 1 MILLIGRAM(S)
     Route: 048
  5. COVERSYL [Suspect]
     Indication: HYPERTENSION
     Dosage: DAILY DOSE: 4 MILLIGRAM(S)
     Route: 048
     Dates: start: 20100212, end: 20100312

REACTIONS (1)
  - DYSPHAGIA [None]
